FAERS Safety Report 23794356 (Version 1)
Quarter: 2024Q2

REPORT INFORMATION
  Report Type: Spontaneous
  Country: US (occurrence: None)
  Receive Date: 20240426
  Receipt Date: 20240426
  Transmission Date: 20240716
  Serious: No
  Sender: FDA-Public Use
  Company Number: None

PATIENT
  Age: 18 Year
  Sex: Female

DRUGS (1)
  1. REMICADE [Suspect]
     Active Substance: INFLIXIMAB
     Dosage: OTHER FREQUENCY : EVERY 8 WEEKS;?
     Dates: start: 20170601

REACTIONS (9)
  - Feeling abnormal [None]
  - Incorrect drug administration rate [None]
  - Crying [None]
  - Panic attack [None]
  - Blood pressure increased [None]
  - Heart rate increased [None]
  - Nausea [None]
  - Headache [None]
  - Infusion related reaction [None]

NARRATIVE: CASE EVENT DATE: 20240426
